FAERS Safety Report 6628222-X (Version None)
Quarter: 2010Q1

REPORT INFORMATION
  Report Type: 
  Country: None (occurrence: None)
  Receive Date: 20100311
  Receipt Date: 20100219
  Transmission Date: 20100710
  Serious: Yes (Hospitalization)
  Sender: FDA-Public Use
  Company Number: US-MYLANLABS-2010S1000239

PATIENT
  Age: 48 Year
  Sex: Female
  Weight: 80.74 kg

DRUGS (14)
  1. OXYBUTYNIN CHLORIDE [Suspect]
     Indication: HYPERTONIC BLADDER
     Route: 048
     Dates: start: 20091206, end: 20091228
  2. OXYBUTYNIN CHLORIDE [Suspect]
     Indication: INCONTINENCE
     Route: 048
     Dates: start: 20091206, end: 20091228
  3. SYNTHROID [Concomitant]
     Indication: HYPOTHYROIDISM
     Route: 048
  4. LORATADINE [Concomitant]
     Indication: HYPERSENSITIVITY
     Route: 048
  5. OMEPRAZOLE [Concomitant]
     Indication: GASTROOESOPHAGEAL REFLUX DISEASE
     Route: 048
  6. FLONASE [Concomitant]
     Indication: ASTHMA
     Dosage: 2 SPRAYS EACH NOSTRIL
     Route: 045
  7. ADVAIR DISKUS 100/50 [Concomitant]
     Indication: ASTHMA
     Route: 055
  8. VITAMIN E [Concomitant]
     Indication: HEPATIC STEATOSIS
     Route: 048
  9. RED YEAST RICE [Concomitant]
     Indication: BLOOD CHOLESTEROL INCREASED
     Dosage: LOVASTATIN
     Route: 048
  10. CITALOPRAM HYDROBROMIDE [Concomitant]
  11. DUONEB [Concomitant]
  12. PROAIR HFA [Concomitant]
  13. ALBUTEROL [Concomitant]
  14. LOVASTATIN [Concomitant]

REACTIONS (7)
  - BACK PAIN [None]
  - CHEST PAIN [None]
  - CONFUSIONAL STATE [None]
  - COSTOCHONDRITIS [None]
  - HYPERTENSION [None]
  - HYPERTONIC BLADDER [None]
  - VOMITING [None]
